FAERS Safety Report 7555239-3 (Version None)
Quarter: 2011Q2

REPORT INFORMATION
  Report Type: 
  Country: None (occurrence: None)
  Receive Date: 20110617
  Receipt Date: 20110606
  Transmission Date: 20111010
  Serious: Yes (Hospitalization)
  Sender: FDA-Public Use
  Company Number: PHFR2011GB03515

PATIENT
  Age: 49 Year
  Sex: Male

DRUGS (2)
  1. CLOZAPINE [Suspect]
     Dosage: 900 MG, DAILY
     Dates: start: 20040901
  2. CLOZAPINE [Suspect]
     Indication: SCHIZOPHRENIA
     Dates: start: 20030401, end: 20040901

REACTIONS (3)
  - BLOOD PRESSURE DECREASED [None]
  - FALL [None]
  - HEAD INJURY [None]
